FAERS Safety Report 4394391-8 (Version None)
Quarter: 2004Q3

REPORT INFORMATION
  Report Type: 
  Country: None (occurrence: None)
  Receive Date: 20040706
  Receipt Date: 20040621
  Transmission Date: 20050211
  Serious: Yes (Hospitalization)
  Sender: FDA-Public Use
  Company Number: T04-USA-02228-01

PATIENT
  Age: 35 Year
  Sex: Female
  Weight: 96.6162 kg

DRUGS (15)
  1. ESCITALOPRAM (OPEN LABEL) (ESCITALOPRAM) [Suspect]
     Indication: POST-TRAUMATIC STRESS DISORDER
     Dosage: 20 MG QD PO
     Route: 048
     Dates: start: 20040318, end: 20040517
  2. ESCITALOPRAM (OPEN LABEL) (ESCITALOPRAM) [Suspect]
     Indication: POST-TRAUMATIC STRESS DISORDER
     Dosage: 20 MG QD PO
     Route: 048
     Dates: start: 20040524
  3. FENTANYL [Suspect]
     Indication: ANAESTHESIA
     Dates: start: 20040518, end: 20040518
  4. ISOFLURANE [Suspect]
     Indication: ANAESTHESIA
     Dates: start: 20040518, end: 20040518
  5. ATIVAN [Concomitant]
  6. OMEPRAZOLE [Concomitant]
  7. BENZOYL PEROXIDE (BENZOYL PEROXIDE) [Concomitant]
  8. CALCIUM WITH VITAMIN D [Concomitant]
  9. CETIRIZINE HCL [Concomitant]
  10. MULTIVITAMIN AND MINERAL SUPPLEMENT [Concomitant]
  11. ACETAMINOPHEN AND OXYCODONE HCL [Concomitant]
  12. SODIUM CHLORIDE 0.9% [Concomitant]
  13. DERMOPHIL INDIEN SUN SCREEN [Concomitant]
  14. TRETONOIN [Concomitant]
  15. TRIAMCINOLONE ACETINIDE [Concomitant]

REACTIONS (16)
  - ABNORMAL DREAMS [None]
  - BENIGN LARYNGEAL NEOPLASM [None]
  - CHEST WALL PAIN [None]
  - COMA [None]
  - CONVERSION DISORDER [None]
  - FALL [None]
  - GAZE PALSY [None]
  - GRAND MAL CONVULSION [None]
  - HEADACHE [None]
  - HEMIPLEGIA TRANSIENT [None]
  - LEUKOPLAKIA [None]
  - PANIC REACTION [None]
  - PARAESTHESIA [None]
  - POST PROCEDURAL COMPLICATION [None]
  - SOMNOLENCE [None]
  - VISION BLURRED [None]
